FAERS Safety Report 8886566 (Version 1)
Quarter: 2012Q4

REPORT INFORMATION
  Report Type: 
  Country: CH (occurrence: CH)
  Receive Date: 20121105
  Receipt Date: 20121105
  Transmission Date: 20130627
  Serious: Yes (Other)
  Sender: FDA-Public Use
  Company Number: CH-BAYER-2012-112036

PATIENT
  Age: 0 None
  Sex: Male
  Weight: 2 kg

DRUGS (3)
  1. YASMIN [Suspect]
     Dosage: UNK
     Route: 064
     Dates: start: 20111014, end: 20111104
  2. CLARITHROMYCIN [Suspect]
     Dosage: 500 mg, BID
     Route: 064
     Dates: start: 20111101, end: 20111106
  3. AMOXICILLIN\CLAVULANATE POTASSIUM [Suspect]
     Indication: BRONCHITIS
     Dosage: 625 mg, TID
     Route: 064
     Dates: start: 20111107, end: 20111114

REACTIONS (4)
  - Foetal growth restriction [Recovered/Resolved]
  - Premature baby [Recovered/Resolved]
  - Exposure during pregnancy [Recovered/Resolved]
  - Maternal drugs affecting foetus [None]
